FAERS Safety Report 4979171-4 (Version None)
Quarter: 2006Q2

REPORT INFORMATION
  Report Type: 
  Country: None (occurrence: None)
  Receive Date: 20060421
  Receipt Date: 20060329
  Transmission Date: 20061013
  Serious: Yes (Hospitalization)
  Sender: FDA-Public Use
  Company Number: FR-GILEAD-2006-0009388

PATIENT
  Age: 61 Year
  Sex: Female
  Weight: 72 kg

DRUGS (6)
  1. VIREAD [Suspect]
     Indication: HIV INFECTION
     Route: 048
     Dates: start: 20030801, end: 20060405
  2. EPIVIR [Concomitant]
     Indication: HIV INFECTION
     Route: 048
     Dates: start: 20030801
  3. VIRACEPT [Concomitant]
     Indication: HIV INFECTION
     Route: 048
     Dates: start: 20020501
  4. PENTACARINAT AEROSOL [Concomitant]
     Indication: PROPHYLAXIS
     Dates: start: 20030901
  5. EFFEXOR [Concomitant]
     Indication: DEPRESSION
     Route: 048
  6. TERCIAN [Concomitant]
     Indication: DEPRESSION
     Route: 048

REACTIONS (6)
  - BLOOD PARATHYROID HORMONE INCREASED [None]
  - BONE PAIN [None]
  - HYPOCALCAEMIA [None]
  - HYPOPHOSPHATAEMIA [None]
  - OSTEOMALACIA [None]
  - VITAMIN D DECREASED [None]
